FAERS Safety Report 16750776 (Version 1)
Quarter: 2019Q3

REPORT INFORMATION
  Report Type: Spontaneous
  Country: US (occurrence: US)
  Receive Date: 20190828
  Receipt Date: 20190828
  Transmission Date: 20191005
  Serious: Yes (Hospitalization, Other)
  Sender: FDA-Public Use
  Company Number: US-HIKMA PHARMACEUTICALS USA INC.-US-H14001-19-04720

PATIENT
  Age: 74 Year
  Sex: Female

DRUGS (1)
  1. HEPARIN [Suspect]
     Active Substance: HEPARIN SODIUM
     Indication: PULMONARY EMBOLISM
     Route: 041

REACTIONS (3)
  - Retroperitoneal haemorrhage [Recovering/Resolving]
  - Peritoneal haemorrhage [Recovering/Resolving]
  - Pancreatic cyst rupture [Recovering/Resolving]
